FAERS Safety Report 19439049 (Version 1)
Quarter: 2021Q2

REPORT INFORMATION
  Report Type: Report from Study
  Country: FR (occurrence: FR)
  Receive Date: 20210618
  Receipt Date: 20210618
  Transmission Date: 20210717
  Serious: Yes (Hospitalization, Other)
  Sender: FDA-Public Use
  Company Number: FR-TAKEDA-2021TUS037503

PATIENT
  Age: 57 Year
  Sex: Female

DRUGS (10)
  1. TEDUGLUTIDE [Suspect]
     Active Substance: TEDUGLUTIDE
     Dosage: 1.5 MILLIGRAM,(0.025MG/KG), QD
     Route: 065
     Dates: start: 20210412
  2. TEDUGLUTIDE [Suspect]
     Active Substance: TEDUGLUTIDE
     Indication: SHORT-BOWEL SYNDROME
     Dosage: 1.5 MILLIGRAM,(0.25MG/KG), QD
     Route: 065
     Dates: start: 20200430, end: 20210331
  3. TEDUGLUTIDE [Suspect]
     Active Substance: TEDUGLUTIDE
     Dosage: 1.5 MILLIGRAM,(0.025MG/KG), QD
     Route: 065
     Dates: start: 20210412
  4. TAZOCILLINE [Concomitant]
     Active Substance: PIPERACILLIN SODIUM\TAZOBACTAM SODIUM
     Indication: SEPTIC SHOCK
     Dosage: 999.0 UNK
     Route: 042
     Dates: start: 20210331, end: 20210401
  5. TEDUGLUTIDE [Suspect]
     Active Substance: TEDUGLUTIDE
     Indication: SHORT-BOWEL SYNDROME
     Dosage: 1.5 MILLIGRAM,(0.25MG/KG), QD
     Route: 065
     Dates: start: 20200430, end: 20210331
  6. TEDUGLUTIDE [Suspect]
     Active Substance: TEDUGLUTIDE
     Dosage: 1.5 MILLIGRAM,(0.025MG/KG), QD
     Route: 065
     Dates: start: 20210412
  7. CLAFORAN [Concomitant]
     Active Substance: CEFOTAXIME SODIUM
     Indication: SEPTIC SHOCK
     Dosage: 1.0 GRAM, TID
     Route: 042
     Dates: start: 20210401, end: 20210408
  8. TEDUGLUTIDE [Suspect]
     Active Substance: TEDUGLUTIDE
     Indication: SHORT-BOWEL SYNDROME
     Dosage: 1.5 MILLIGRAM,(0.25MG/KG), QD
     Route: 065
     Dates: start: 20200430, end: 20210331
  9. TEDUGLUTIDE [Suspect]
     Active Substance: TEDUGLUTIDE
     Indication: SHORT-BOWEL SYNDROME
     Dosage: 1.5 MILLIGRAM,(0.25MG/KG), QD
     Route: 065
     Dates: start: 20200430, end: 20210331
  10. TEDUGLUTIDE [Suspect]
     Active Substance: TEDUGLUTIDE
     Dosage: 1.5 MILLIGRAM,(0.025MG/KG), QD
     Route: 065
     Dates: start: 20210412

REACTIONS (1)
  - Septic shock [Recovered/Resolved]

NARRATIVE: CASE EVENT DATE: 20210330
